FAERS Safety Report 18175595 (Version 1)
Quarter: 2020Q3

REPORT INFORMATION
  Report Type: Spontaneous
  Country: CH (occurrence: CH)
  Receive Date: 20200820
  Receipt Date: 20200820
  Transmission Date: 20201103
  Serious: Yes (Other)
  Sender: FDA-Public Use
  Company Number: CH-NEBO-PC005883

PATIENT
  Age: 33 Year
  Sex: Female
  Weight: 59 kg

DRUGS (1)
  1. MONOFER [Suspect]
     Active Substance: IRON ISOMALTOSIDE 1000
     Indication: ANAEMIA OF PREGNANCY
     Route: 042
     Dates: start: 20200513, end: 20200513

REACTIONS (3)
  - Maternal exposure during pregnancy [Unknown]
  - Angina pectoris [Recovered/Resolved]
  - Tachycardia [Recovered/Resolved]
